FAERS Safety Report 18886455 (Version 1)
Quarter: 2021Q1

REPORT INFORMATION
  Report Type: Spontaneous
  Country: CN (occurrence: CN)
  Receive Date: 20210212
  Receipt Date: 20210212
  Transmission Date: 20210420
  Serious: Yes (Hospitalization, Other)
  Sender: FDA-Public Use
  Company Number: CN-PFIZER INC-2021122975

PATIENT
  Age: 92 Year
  Sex: Female
  Weight: 33 kg

DRUGS (2)
  1. CELECOXIB. [Suspect]
     Active Substance: CELECOXIB
     Indication: SYMPTOMATIC TREATMENT
     Dosage: 1.000 CAPSULE, 1X/DAY
     Route: 048
     Dates: start: 20200306, end: 20210117
  2. DICLOFENAC SODIUM. [Suspect]
     Active Substance: DICLOFENAC SODIUM
     Indication: SYMPTOMATIC TREATMENT
     Dosage: 1.000 CAPSULE, 1X/DAY
     Route: 048
     Dates: start: 20200825, end: 20210117

REACTIONS (3)
  - Gastric perforation [Recovering/Resolving]
  - Upper gastrointestinal haemorrhage [Recovering/Resolving]
  - Disease recurrence [Recovering/Resolving]

NARRATIVE: CASE EVENT DATE: 20210117
